FAERS Safety Report 4309482-7 (Version None)
Quarter: 2004Q1

REPORT INFORMATION
  Report Type: 
  Country: None (occurrence: None)
  Receive Date: 20040227
  Receipt Date: 20040209
  Transmission Date: 20041129
  Serious: Yes (Hospitalization)
  Sender: FDA-Public Use
  Company Number: PHEH2004US01849

PATIENT
  Age: 50 Year
  Sex: Female
  Weight: 52 kg

DRUGS (5)
  1. ZELNORM [Suspect]
     Indication: ABDOMINAL PAIN UPPER
     Dosage: 6 MG, BID
     Route: 048
     Dates: start: 20040119, end: 20040205
  2. ACEON [Concomitant]
  3. HYDROCHLOROTHIAZIDE [Concomitant]
  4. HORMONES [Concomitant]
     Route: 062
  5. ACTONEL [Concomitant]

REACTIONS (11)
  - ABDOMINAL DISTENSION [None]
  - ABDOMINAL PAIN [None]
  - BLOOD POTASSIUM DECREASED [None]
  - COLITIS ISCHAEMIC [None]
  - DIARRHOEA HAEMORRHAGIC [None]
  - DIVERTICULUM [None]
  - HAEMORRHOIDS [None]
  - MELAENA [None]
  - NAUSEA [None]
  - VOMITING [None]
  - WHITE BLOOD CELL COUNT INCREASED [None]
